FAERS Safety Report 5618279-7 (Version None)
Quarter: 2008Q1

REPORT INFORMATION
  Report Type: 
  Country: None (occurrence: None)
  Receive Date: 20080206
  Receipt Date: 20080206
  Transmission Date: 20080703
  Serious: Yes (Other)
  Sender: FDA-Public Use
  Company Number: None

PATIENT
  Sex: Female
  Weight: 74.8435 kg

DRUGS (1)
  1. CYMBALTA [Suspect]
     Indication: BIPOLAR DISORDER
     Dosage: 60 MG  DAILY PO
     Route: 048
     Dates: start: 20060901, end: 20071231

REACTIONS (3)
  - INTRAOCULAR PRESSURE INCREASED [None]
  - OPTIC NERVE DISORDER [None]
  - VISUAL ACUITY REDUCED [None]
